FAERS Safety Report 5492610-8 (Version None)
Quarter: 2007Q4

REPORT INFORMATION
  Report Type: 
  Country: None (occurrence: None)
  Receive Date: 20071022
  Receipt Date: 20071015
  Transmission Date: 20080405
  Serious: Yes (Life-Threatening, Hospitalization, Disabling, Other)
  Sender: FDA-Public Use
  Company Number: US-MERCK-0710USA03353

PATIENT
  Age: 63 Year
  Sex: Female

DRUGS (4)
  1. JANUVIA [Suspect]
     Indication: TYPE 2 DIABETES MELLITUS
     Route: 048
     Dates: start: 20070702, end: 20070919
  2. LISINOPRIL [Concomitant]
     Route: 065
  3. ABILIFY [Concomitant]
     Route: 065
  4. WELLBUTRIN [Concomitant]
     Route: 065

REACTIONS (1)
  - RENAL FAILURE [None]
